FAERS Safety Report 7394986-3 (Version None)
Quarter: 2011Q2

REPORT INFORMATION
  Report Type: 
  Country: None (occurrence: None)
  Receive Date: 20110405
  Receipt Date: 20110309
  Transmission Date: 20111010
  Serious: No
  Sender: FDA-Public Use
  Company Number: US-B.I. PHARMACEUTICALS,INC./RIDGEFIELD-2011-BP-07518BP

PATIENT
  Sex: Female

DRUGS (9)
  1. LEVOXYL [Concomitant]
     Indication: HYPOTHYROIDISM
  2. LIPITOR [Concomitant]
     Indication: BLOOD CHOLESTEROL INCREASED
     Dosage: 450 MG
  3. BENICAR [Concomitant]
     Indication: HYPERTENSION
     Dosage: 40 MG
  4. MULTIVITAMIN [Concomitant]
     Indication: MACULAR DEGENERATION
  5. AMLODIPINE [Concomitant]
     Indication: HYPERTENSION
     Dosage: 10 MG
  6. PRADAXA [Suspect]
     Indication: ATRIAL FIBRILLATION
     Dosage: 150 MG
     Route: 048
     Dates: start: 20110306, end: 20110306
  7. FUROSEMIDE [Concomitant]
     Indication: FLUID RETENTION
     Dosage: 20 MG
  8. PROPAFENONE [Concomitant]
     Indication: HYPERTENSION
     Dosage: 450 MG
  9. CALCIUM [Concomitant]
     Indication: PROPHYLAXIS

REACTIONS (1)
  - DIZZINESS [None]
